FAERS Safety Report 9995231 (Version 2)
Quarter: 2014Q1

REPORT INFORMATION
  Report Type: Report from Study
  Country: MX (occurrence: MX)
  Receive Date: 20140311
  Receipt Date: 20140311
  Transmission Date: 20141002
  Serious: Yes (Other)
  Sender: FDA-Public Use
  Company Number: PHHY2012MX062908

PATIENT
  Age: 78 Year
  Sex: Female

DRUGS (4)
  1. ACLASTA [Suspect]
     Indication: OSTEOPOROSIS
     Dosage: 5 MG/100 YEARLY
     Route: 042
     Dates: start: 200911
  2. ACLASTA [Suspect]
     Dosage: 5 MG/100 YEARLY
     Route: 042
     Dates: start: 201201
  3. TEGRETOL 200 LC [Suspect]
     Dosage: 200 MG, TID
  4. TEGRETOL 200 LC [Suspect]
     Dosage: 200 MG, QD

REACTIONS (8)
  - Diabetes mellitus [Unknown]
  - Nervous system disorder [Not Recovered/Not Resolved]
  - Amnesia [Not Recovered/Not Resolved]
  - Gastrointestinal disorder [Not Recovered/Not Resolved]
  - Abnormal behaviour [Not Recovered/Not Resolved]
  - Anaemia [Not Recovered/Not Resolved]
  - Hypertension [Unknown]
  - Vomiting [Not Recovered/Not Resolved]
